FAERS Safety Report 14582656 (Version 1)
Quarter: 2018Q1

REPORT INFORMATION
  Report Type: Spontaneous
  Country: ES (occurrence: ES)
  Receive Date: 20180228
  Receipt Date: 20180228
  Transmission Date: 20180509
  Serious: Yes (Life-Threatening, Hospitalization)
  Sender: FDA-Public Use
  Company Number: ES-PFIZER INC-2018082439

PATIENT
  Age: 62 Year
  Sex: Female

DRUGS (3)
  1. METHOTREXATE SODIUM. [Suspect]
     Active Substance: METHOTREXATE SODIUM
     Indication: DERMATOMYOSITIS
     Dosage: 15 MG, WEEKLY
     Route: 058
     Dates: start: 20171001, end: 20180115
  2. PREDNISONE. [Interacting]
     Active Substance: PREDNISONE
     Indication: DERMATOMYOSITIS
     Dosage: 20 MG, 1X/DAY
     Route: 048
     Dates: start: 20160604, end: 20180115
  3. CICLOSPORIN [Interacting]
     Active Substance: CYCLOSPORINE
     Indication: DERMATOMYOSITIS
     Dosage: 75 MG, 2X/DAY (12H)
     Route: 048
     Dates: start: 20160604, end: 20180122

REACTIONS (2)
  - Pneumocystis jirovecii pneumonia [Recovered/Resolved]
  - Drug interaction [Recovered/Resolved]

NARRATIVE: CASE EVENT DATE: 20171223
